FAERS Safety Report 5523207-9 (Version None)
Quarter: 2007Q4

REPORT INFORMATION
  Report Type: 
  Country: None (occurrence: None)
  Receive Date: 20071121
  Receipt Date: 20071115
  Transmission Date: 20080405
  Serious: Yes (Death)
  Sender: FDA-Public Use
  Company Number: JP-BRISTOL-MYERS SQUIBB COMPANY-13980784

PATIENT
  Age: 76 Year
  Sex: Female

DRUGS (6)
  1. MEVALOTIN [Suspect]
     Dates: start: 20040227, end: 20040304
  2. SERMION [Suspect]
     Dates: start: 20040227, end: 20040304
  3. AMOBAN [Suspect]
     Dates: start: 20040227, end: 20040304
  4. TETRAMIDE [Suspect]
     Dates: start: 20040227, end: 20040304
  5. RISPERDAL [Suspect]
     Dates: start: 20040227, end: 20040304
  6. BUP-4 [Suspect]
     Dates: start: 20040227, end: 20040304

REACTIONS (1)
  - DEATH [None]
